FAERS Safety Report 21208185 (Version 1)
Quarter: 2022Q3

REPORT INFORMATION
  Report Type: Report from Study
  Country: US (occurrence: US)
  Receive Date: 20220812
  Receipt Date: 20220812
  Transmission Date: 20221027
  Serious: No
  Sender: FDA-Public Use
  Company Number: US-KADMON-US-KAD-22-00453

PATIENT
  Sex: Female

DRUGS (1)
  1. BELUMOSUDIL [Suspect]
     Active Substance: BELUMOSUDIL
     Indication: Product used for unknown indication
     Dosage: 200 MILLIGRAM, QD
     Route: 065
     Dates: start: 20211014

REACTIONS (6)
  - Renal pain [Unknown]
  - Abdominal discomfort [Unknown]
  - Irritable bowel syndrome [Unknown]
  - Malaise [Unknown]
  - Asthenia [Unknown]
  - Drug ineffective [Unknown]
